FAERS Safety Report 11409838 (Version 1)
Quarter: 2015Q3

REPORT INFORMATION
  Report Type: Spontaneous
  Country: US (occurrence: None)
  Receive Date: 20150820
  Receipt Date: 20150820
  Transmission Date: 20151125
  Serious: Yes (Other)
  Sender: FDA-Public Use
  Company Number: 2015-10750

PATIENT
  Age: 42 Year
  Sex: Male

DRUGS (3)
  1. ANDROGEL [Suspect]
     Active Substance: TESTOSTERONE
     Indication: BLOOD TESTOSTERONE DECREASED
     Dosage: AS DIRECTED
     Dates: start: 200910, end: 201209
  2. TESTIM [Suspect]
     Active Substance: TESTOSTERONE
     Indication: BLOOD TESTOSTERONE DECREASED
     Dosage: AS DIRECTED
     Dates: start: 20080301
  3. TESTOSTERONE CYPIONATE (UNKNOWN)(TESTOSTERONE CYPIONATE) UNK [Suspect]
     Active Substance: TESTOSTERONE CYPIONATE
     Indication: BLOOD TESTOSTERONE DECREASED
     Dosage: AS DIRECTED, UNKNOWN, UNKNOWN
     Dates: start: 201306, end: 201403

REACTIONS (1)
  - Myocardial infarction [None]

NARRATIVE: CASE EVENT DATE: 201109
